FAERS Safety Report 6660390-6 (Version None)
Quarter: 2010Q1

REPORT INFORMATION
  Report Type: 
  Country: None (occurrence: None)
  Receive Date: 20100331
  Receipt Date: 20100317
  Transmission Date: 20100710
  Serious: Yes (Hospitalization)
  Sender: FDA-Public Use
  Company Number: US-RANBAXY-2010RR-32751

PATIENT
  Age: 19 Year
  Sex: Male

DRUGS (3)
  1. IBUPROFEN [Suspect]
     Route: 048
  2. ALPRAZOLAM [Concomitant]
     Route: 048
  3. COCAINE [Concomitant]
     Route: 048

REACTIONS (2)
  - METABOLIC ACIDOSIS [None]
  - OVERDOSE [None]
